FAERS Safety Report 8807219 (Version 1)
Quarter: 2012Q4

REPORT INFORMATION
  Report Type: Report from Study
  Country: US (occurrence: US)
  Receive Date: 20120925
  Receipt Date: 20120925
  Transmission Date: 20130627
  Serious: Yes (Other)
  Sender: FDA-Public Use
  Company Number: US-ABBOTT-12P-163-0981853-00

PATIENT
  Sex: Female
  Weight: 52.21 kg

DRUGS (3)
  1. HUMIRA [Suspect]
     Dates: start: 201204
  2. HYDROXYCHLORAQUINE [Concomitant]
     Indication: RHEUMATOID ARTHRITIS
  3. PREDNISONE ACETATE [Concomitant]
     Indication: RHEUMATOID ARTHRITIS

REACTIONS (1)
  - Carpal tunnel syndrome [Recovering/Resolving]
